APPROVED DRUG PRODUCT: TERRAMYCIN
Active Ingredient: OXYTETRACYCLINE CALCIUM
Strength: EQ 125MG BASE/5ML
Dosage Form/Route: SYRUP;ORAL
Application: A060595 | Product #001
Applicant: PFIZER LABORATORIES DIV PFIZER INC
Approved: Approved Prior to Jan 1, 1982 | RLD: No | RS: No | Type: DISCN